FAERS Safety Report 9055109 (Version 2)
Quarter: 2013Q1

REPORT INFORMATION
  Report Type: Spontaneous
  Country: CH (occurrence: CH)
  Receive Date: 20130206
  Receipt Date: 20130220
  Transmission Date: 20140127
  Serious: Yes (Other)
  Sender: FDA-Public Use
  Company Number: CH-JNJFOC-20130112318

PATIENT
  Sex: Female

DRUGS (11)
  1. RISPERDAL [Suspect]
     Indication: SCHIZOAFFECTIVE DISORDER
     Route: 048
  2. FLUANXOL NOS [Concomitant]
     Route: 065
  3. XANAX [Concomitant]
     Route: 065
  4. TEMESTA [Concomitant]
     Route: 065
  5. SERALIN [Concomitant]
     Route: 065
  6. NOZINAN [Concomitant]
     Route: 065
  7. ROHYPNOL [Concomitant]
     Route: 065
  8. DAFALGAN [Concomitant]
     Dosage: 4X1 MG
     Route: 065
  9. ANTRA [Concomitant]
     Route: 065
  10. NITROGLYCERIN [Concomitant]
     Route: 065
  11. NOVALGIN [Concomitant]
     Route: 065

REACTIONS (4)
  - Hallucination, auditory [Recovering/Resolving]
  - Extrapyramidal disorder [Recovering/Resolving]
  - Osteoporosis [Unknown]
  - Decreased appetite [Unknown]
